FAERS Safety Report 4557496-4 (Version None)
Quarter: 2005Q1

REPORT INFORMATION
  Report Type: 
  Country: None (occurrence: None)
  Receive Date: 20050120
  Receipt Date: 20041125
  Transmission Date: 20050727
  Serious: Yes (Death, Disabling, Other)
  Sender: FDA-Public Use
  Company Number: PHBS2004JP15851

PATIENT
  Age: 46 Year
  Sex: Female
  Weight: 52 kg

DRUGS (14)
  1. ALKERAN [Concomitant]
     Dosage: 100 MG/DAY
     Route: 042
     Dates: start: 20031215, end: 20031216
  2. PREDONINE [Concomitant]
     Indication: GRAFT VERSUS HOST DISEASE
     Dosage: 40 MG/DAY
     Route: 042
     Dates: start: 20031231, end: 20040104
  3. PROGRAF [Concomitant]
     Indication: GRAFT VERSUS HOST DISEASE
     Dosage: 0.1 MG/DAY
     Dates: start: 20040110, end: 20040113
  4. GRAN [Concomitant]
     Indication: WHITE BLOOD CELL COUNT DECREASED
     Dosage: 300 UG/DAY
     Route: 042
     Dates: start: 20031224, end: 20040111
  5. DECADRON [Concomitant]
     Indication: PROPHYLAXIS OF NAUSEA AND VOMITING
     Dosage: 8 MG/DAY
     Route: 042
     Dates: start: 20031217, end: 20031219
  6. DIFLUCAN [Concomitant]
     Indication: FUNGAL INFECTION
     Dosage: 400 MG/DAY
     Route: 042
     Dates: start: 20031217, end: 20031230
  7. FUNGUARD [Concomitant]
     Indication: FUNGAL INFECTION
     Dosage: 150 MG/DAY
     Route: 042
     Dates: start: 20031221, end: 20040205
  8. SAXIZON [Concomitant]
     Indication: ANTIPYRESIS
     Dosage: 100 MG/DAY
     Route: 042
     Dates: start: 20040105, end: 20040114
  9. MELPHALAN [Concomitant]
     Indication: CORD BLOOD TRANSPLANT THERAPY
     Dosage: 140 MG/M2
     Route: 065
     Dates: start: 20031219, end: 20031219
  10. METHOTREXATE [Concomitant]
     Indication: CORD BLOOD TRANSPLANT THERAPY
     Dosage: 15 MG - 10 MG/DAY
     Route: 042
     Dates: start: 20031220, end: 20031226
  11. IRRADIATION [Concomitant]
  12. SANDIMMUNE [Suspect]
     Indication: CORD BLOOD TRANSPLANT THERAPY
     Dosage: 75 MG/DAY
     Dates: start: 20031222, end: 20031224
  13. SANDIMMUNE [Suspect]
     Dosage: 100 MG/DAY
     Dates: start: 20031225, end: 20040105
  14. SANDIMMUNE [Suspect]
     Dosage: 150 MG/DAY
     Dates: start: 20031218, end: 20031221

REACTIONS (15)
  - ACUTE LYMPHOCYTIC LEUKAEMIA [None]
  - ALLODYNIA [None]
  - BODY TEMPERATURE DECREASED [None]
  - COMA [None]
  - DEPRESSED LEVEL OF CONSCIOUSNESS [None]
  - ENCEPHALOPATHY [None]
  - MUSCLE SPASTICITY [None]
  - MYALGIA [None]
  - PAIN [None]
  - PAIN IN EXTREMITY [None]
  - PARAESTHESIA [None]
  - PNEUMONIA [None]
  - PRURITUS GENERALISED [None]
  - SOMNOLENCE [None]
  - VISUAL DISTURBANCE [None]
